FAERS Safety Report 19272316 (Version 1)
Quarter: 2021Q2

REPORT INFORMATION
  Report Type: Report from Study
  Country: ZA (occurrence: ZA)
  Receive Date: 20210519
  Receipt Date: 20210519
  Transmission Date: 20210717
  Serious: Yes (Hospitalization, Other)
  Sender: FDA-Public Use
  Company Number: NVSC2021ZA106347

PATIENT
  Age: 35 Year
  Sex: Female

DRUGS (1)
  1. TUVIGIN [Suspect]
     Active Substance: FINGOLIMOD HYDROCHLORIDE
     Indication: RELAPSING-REMITTING MULTIPLE SCLEROSIS
     Dosage: 0.5 MG, QD
     Route: 048
     Dates: start: 20190806

REACTIONS (11)
  - Multiple sclerosis relapse [Unknown]
  - Dysuria [Unknown]
  - Urge incontinence [Unknown]
  - Noninfectious peritonitis [Unknown]
  - Haemorrhagic infarction [Unknown]
  - Post procedural complication [Unknown]
  - Gastrointestinal inflammation [Unknown]
  - Intestinal infarction [Unknown]
  - Lymphadenopathy [Unknown]
  - Intestinal obstruction [Unknown]
  - Rectal prolapse [Unknown]

NARRATIVE: CASE EVENT DATE: 202011
